FAERS Safety Report 8974343 (Version 1)
Quarter: 2012Q4

REPORT INFORMATION
  Report Type: 
  Country: US (occurrence: US)
  Receive Date: 20121219
  Receipt Date: 20121219
  Transmission Date: 20130627
  Serious: No
  Sender: FDA-Public Use
  Company Number: US-AMGEN-USASP2012058605

PATIENT
  Age: 72 Year
  Sex: Female

DRUGS (11)
  1. PROLIA [Suspect]
     Indication: PRODUCT USED FOR UNKNOWN INDICATION
  2. PREDNISONE [Concomitant]
  3. PREVACID [Concomitant]
  4. POTASSIUM [Concomitant]
  5. METOPROLOL [Concomitant]
  6. TRIAVIL [Concomitant]
  7. TOPAMAX [Concomitant]
  8. VITAMIN D /00107901/ [Concomitant]
  9. TUMS                               /00193601/ [Concomitant]
  10. MAGNESIUM [Concomitant]
  11. MULTIVITAMIN                       /00097801/ [Concomitant]

REACTIONS (2)
  - Pruritus generalised [Not Recovered/Not Resolved]
  - Acne [Not Recovered/Not Resolved]
